FAERS Safety Report 19382455 (Version 1)
Quarter: 2021Q2

REPORT INFORMATION
  Report Type: Spontaneous
  Country: US (occurrence: US)
  Receive Date: 20210607
  Receipt Date: 20210607
  Transmission Date: 20210717
  Serious: No
  Sender: FDA-Public Use
  Company Number: NVSC2021US120496

PATIENT
  Sex: Female

DRUGS (1)
  1. TRILEPTAL [Suspect]
     Active Substance: OXCARBAZEPINE
     Indication: PRODUCT USED FOR UNKNOWN INDICATION
     Dosage: UNK
     Route: 065

REACTIONS (9)
  - Toxicity to various agents [Unknown]
  - Diplopia [Unknown]
  - Balance disorder [Unknown]
  - Gait disturbance [Unknown]
  - Headache [Unknown]
  - Nausea [Unknown]
  - Contusion [Unknown]
  - Paraesthesia [Unknown]
  - Weight decreased [Unknown]
